FAERS Safety Report 7608531-8 (Version None)
Quarter: 2011Q3

REPORT INFORMATION
  Report Type: 
  Country: None (occurrence: None)
  Receive Date: 20110714
  Receipt Date: 20110704
  Transmission Date: 20111222
  Serious: Yes (Hospitalization)
  Sender: FDA-Public Use
  Company Number: PHHY2011DE39814

PATIENT
  Sex: Female
  Weight: 60 kg

DRUGS (4)
  1. MADOPAR [Concomitant]
     Indication: PARKINSON'S DISEASE
     Dates: start: 20110531
  2. IBUPROFEN [Concomitant]
     Indication: PAIN
     Dosage: 400 MG, TID
     Dates: start: 20110609
  3. SANDOSTATIN LAR [Suspect]
     Indication: LUNG NEOPLASM MALIGNANT
     Dosage: 10 MG, UNK
     Dates: start: 20090801
  4. ZOPICLONE [Concomitant]
     Dosage: 0.5 DF, QD AT NIGHT
     Dates: start: 20110615

REACTIONS (2)
  - GAIT DISTURBANCE [None]
  - DIZZINESS [None]
